FAERS Safety Report 5628778-X (Version None)
Quarter: 2008Q1

REPORT INFORMATION
  Report Type: 
  Country: None (occurrence: None)
  Receive Date: 20080214
  Receipt Date: 20080207
  Transmission Date: 20080703
  Serious: Yes (Death)
  Sender: FDA-Public Use
  Company Number: 2007US000768

PATIENT
  Age: 74 Year
  Sex: Female
  Weight: 107.9 kg

DRUGS (23)
  1. AMEVIVE [Suspect]
     Indication: PSORIASIS
     Dosage: 15 MG, WEEKLY, INTRAMUSCULAR
     Route: 030
     Dates: start: 20041029, end: 20050114
  2. FAMOTIDINE [Concomitant]
  3. PREDNISOLONE ACETATE [Concomitant]
  4. ARICEPT [Concomitant]
  5. XANAX [Concomitant]
  6. FOSAMAX [Concomitant]
  7. ULTRAM [Concomitant]
  8. CELEBREX [Concomitant]
  9. OS-CAL (ERGOCALCIFEROL CALCIUM) [Concomitant]
  10. IMURAN [Concomitant]
  11. PRILOSEC [Concomitant]
  12. TEMAZEPAM [Concomitant]
  13. POTASSIUM CHLORIDE [Concomitant]
  14. DIGESTIVES, INCL ENZYMES [Concomitant]
  15. PREVACID [Concomitant]
  16. ADVAIR DISKUS 100/50 [Concomitant]
  17. ALBUTEROL [Concomitant]
  18. FERROUS SULFATE TAB [Concomitant]
  19. GLUCOSAMINE (COD-LIVER OIL, GLUCOSAMINE, VITAMINS NOS, MINERALS NOS, S [Concomitant]
  20. CHONDROITIN (CHONDROITIN) [Concomitant]
  21. L-LYSINE (LYSINE) [Concomitant]
  22. CYCLOSPORINE [Concomitant]
  23. ASACOL [Concomitant]

REACTIONS (3)
  - COLITIS ULCERATIVE [None]
  - CORONARY ARTERY DISEASE [None]
  - HEPATIC CANCER METASTATIC [None]
